FAERS Safety Report 5362708-3 (Version None)
Quarter: 2007Q2

REPORT INFORMATION
  Report Type: 
  Country: None (occurrence: None)
  Receive Date: 20070612
  Receipt Date: 20070403
  Transmission Date: 20071010
  Serious: Yes (Hospitalization)
  Sender: FDA-Public Use
  Company Number: MEDI-0005204

PATIENT
  Age: 20 Month

DRUGS (13)
  1. SYNAGIS [Suspect]
     Indication: CARDIAC DISORDER
     Dosage: SEE IMAGE
     Route: 030
     Dates: start: 20051129, end: 20060216
  2. SYNAGIS [Suspect]
     Indication: CARDIAC DISORDER
     Dosage: SEE IMAGE
     Route: 030
     Dates: start: 20051129
  3. SYNAGIS [Suspect]
     Indication: CARDIAC DISORDER
     Dosage: SEE IMAGE
     Route: 030
     Dates: start: 20060116
  4. SYNAGIS [Suspect]
     Indication: CARDIAC DISORDER
     Dosage: SEE IMAGE
     Route: 030
     Dates: start: 20061215
  5. SYNAGIS [Suspect]
     Indication: CARDIAC DISORDER
     Dosage: SEE IMAGE
     Route: 030
     Dates: start: 20061215
  6. SYNAGIS [Suspect]
  7. SYNAGIS [Suspect]
  8. SYNAGIS [Suspect]
  9. SYNAGIS [Suspect]
  10. SYNAGIS [Suspect]
  11. SPIRONOLACTONE [Concomitant]
  12. VITAMIN D (ERGOCALCIFERON) [Concomitant]
  13. FLUOR (SODIUM FLUORIDE) [Concomitant]

REACTIONS (2)
  - CONVULSION [None]
  - GASTROENTERITIS [None]
